FAERS Safety Report 22374962 (Version 1)
Quarter: 2023Q2

REPORT INFORMATION
  Report Type: Spontaneous
  Country: US (occurrence: US)
  Receive Date: 20230527
  Receipt Date: 20230527
  Transmission Date: 20230722
  Serious: No
  Sender: FDA-Public Use
  Company Number: US-NEBO-PC010586

PATIENT
  Sex: Male

DRUGS (6)
  1. MONOFERRIC [Suspect]
     Active Substance: FERRIC DERISOMALTOSE
     Indication: Iron deficiency anaemia
     Route: 050
     Dates: start: 20230428, end: 20230428
  2. LOSARTAN [Concomitant]
     Active Substance: LOSARTAN
     Route: 050
     Dates: start: 20230404
  3. METOPROLOL [Concomitant]
     Active Substance: METOPROLOL
     Route: 050
     Dates: start: 20230404
  4. VITAMINS NOS [Concomitant]
     Active Substance: VITAMINS
     Dosage: AS NECESSARY
     Dates: start: 20230425
  5. PANTOPRAZOLE [Concomitant]
     Active Substance: PANTOPRAZOLE
     Route: 050
     Dates: start: 20230411
  6. URSODIOL [Concomitant]
     Active Substance: URSODIOL
     Route: 050
     Dates: start: 20230103

REACTIONS (1)
  - Urticaria [Recovered/Resolved]

NARRATIVE: CASE EVENT DATE: 20230428
